FAERS Safety Report 15545809 (Version 6)
Quarter: 2020Q2

REPORT INFORMATION
  Report Type: Spontaneous
  Country: CA (occurrence: CA)
  Receive Date: 20181024
  Receipt Date: 20200521
  Transmission Date: 20200713
  Serious: Yes (Hospitalization, Other)
  Sender: FDA-Public Use
  Company Number: CA-PFIZER INC-2018434750

PATIENT
  Age: 48 Year
  Sex: Female

DRUGS (12)
  1. XOLAIR [Suspect]
     Active Substance: OMALIZUMAB
     Dosage: 450 MG, MONTHLY (450 MILLIGRAM, Q4WEEKS)
     Route: 058
     Dates: start: 20180523
  2. XOLAIR [Suspect]
     Active Substance: OMALIZUMAB
     Dosage: 450 MG, MONTHLY (450 MILLIGRAM, Q4WEEKS)
     Route: 058
     Dates: start: 20180620
  3. XOLAIR [Suspect]
     Active Substance: OMALIZUMAB
     Dosage: 450 MG, MONTHLY (450 MILLIGRAM, Q4WEEKS)
     Route: 058
     Dates: start: 20180427
  4. APO-DOXEPIN [Concomitant]
     Active Substance: DOXEPIN
     Dosage: UNK
     Route: 048
     Dates: start: 20170802
  5. CANNABIS [Concomitant]
     Active Substance: CANNABIS SATIVA SUBSP. INDICA TOP
     Indication: PANCREATITIS CHRONIC
     Dosage: UNK
     Route: 016
  6. XOLAIR [Suspect]
     Active Substance: OMALIZUMAB
     Dosage: 300 MG
     Route: 058
  7. XOLAIR [Suspect]
     Active Substance: OMALIZUMAB
     Dosage: 300 MG
     Route: 058
  8. XOLAIR [Suspect]
     Active Substance: OMALIZUMAB
     Indication: CHRONIC SPONTANEOUS URTICARIA
     Dosage: 450 MG, MONTHLY (450 MILLIGRAM, Q4WEEKS)
     Route: 058
     Dates: start: 20180321
  9. PANTOPRAZOLE [Suspect]
     Active Substance: PANTOPRAZOLE
     Indication: GASTROOESOPHAGEAL REFLUX DISEASE
     Dosage: 40 MG, 1X/DAY (QD)
     Route: 048
     Dates: start: 201708
  10. HYDROCORTISONE. [Concomitant]
     Active Substance: HYDROCORTISONE
     Dosage: UNK
     Route: 061
     Dates: start: 20170619
  11. XOLAIR [Suspect]
     Active Substance: OMALIZUMAB
     Dosage: 450 MG, MONTHLY (450 MILLIGRAM, Q4WEEKS)
     Route: 058
     Dates: start: 20181023
  12. IMOVANE [Concomitant]
     Active Substance: ZOPICLONE
     Dosage: UNK, 1X/DAY (QD )
     Route: 048

REACTIONS (16)
  - Abdominal discomfort [Unknown]
  - Malaise [Not Recovered/Not Resolved]
  - Asthenia [Unknown]
  - Pancreatitis chronic [Recovered/Resolved]
  - Headache [Unknown]
  - Sensation of foreign body [Not Recovered/Not Resolved]
  - Facial pain [Unknown]
  - Pruritus [Not Recovered/Not Resolved]
  - Speech disorder [Unknown]
  - Migraine [Unknown]
  - Vomiting [Unknown]
  - Concomitant disease aggravated [Not Recovered/Not Resolved]
  - Hypoacusis [Unknown]
  - Blood pressure increased [Not Recovered/Not Resolved]
  - Pharyngeal oedema [Unknown]
  - Injection site pain [Unknown]

NARRATIVE: CASE EVENT DATE: 20171113
